FAERS Safety Report 7892437-3 (Version None)
Quarter: 2011Q4

REPORT INFORMATION
  Report Type: 
  Country: None (occurrence: None)
  Receive Date: 20111104
  Receipt Date: 20110712
  Transmission Date: 20120403
  Serious: No
  Sender: FDA-Public Use
  Company Number: US-BAYER-2011-106115

PATIENT
  Sex: Female

DRUGS (2)
  1. MIRENA [Suspect]
     Dosage: 24 MCG/24HR, CONT
     Route: 015
  2. MIRENA [Suspect]
     Indication: CONTRACEPTION
     Dosage: 24 MCG/24HR, CONT
     Route: 015
     Dates: start: 20110708

REACTIONS (1)
  - DEVICE EXPULSION [None]
